FAERS Safety Report 10230928 (Version 1)
Quarter: 2014Q2

REPORT INFORMATION
  Report Type: Spontaneous
  Country: US (occurrence: US)
  Receive Date: 20140611
  Receipt Date: 20140611
  Transmission Date: 20141212
  Serious: Yes (Hospitalization)
  Sender: FDA-Public Use
  Company Number: US-JNJFOC-20140601377

PATIENT
  Age: 47 Year
  Sex: Male
  Weight: 78.93 kg

DRUGS (5)
  1. PREZISTA [Suspect]
     Indication: HIV INFECTION
     Route: 048
     Dates: start: 201405
  2. NORVIR [Concomitant]
     Indication: HIV INFECTION
     Route: 065
     Dates: start: 2004
  3. TRUVADA [Concomitant]
     Indication: HIV INFECTION
     Route: 065
     Dates: start: 2004
  4. PANTOPRAZOLE [Concomitant]
     Indication: GASTROOESOPHAGEAL REFLUX DISEASE
     Route: 065
  5. UNSPECIFIED DEPRESSION MEDICATION [Concomitant]
     Indication: ANTIDEPRESSANT THERAPY
     Route: 065

REACTIONS (3)
  - Diverticulitis [Unknown]
  - Blood glucose increased [Unknown]
  - Glycosylated haemoglobin decreased [Unknown]
